FAERS Safety Report 5390675-5 (Version None)
Quarter: 2007Q3

REPORT INFORMATION
  Report Type: 
  Country: None (occurrence: None)
  Receive Date: 20070718
  Receipt Date: 20070706
  Transmission Date: 20080115
  Serious: Yes (Hospitalization)
  Sender: FDA-Public Use
  Company Number: US-SHR-US-2007-022524

PATIENT
  Age: 51 Year
  Sex: Female
  Weight: 68.027 kg

DRUGS (6)
  1. BETASERON [Suspect]
     Indication: RELAPSING-REMITTING MULTIPLE SCLEROSIS
     Dosage: 8 MIU, EVERY 2D
     Route: 058
     Dates: start: 20030314, end: 20060901
  2. MICARDIS HCT [Concomitant]
     Dosage: 1 TAB(S), 1X/DAY
  3. FELODIPINE [Concomitant]
     Dosage: 5 MG/D, UNK
  4. SINGULAIR [Concomitant]
     Dosage: 10 MG/D, UNK
  5. FEXOFENADINE [Concomitant]
     Dosage: 180 MG/D, UNK
  6. CALCIUM W/VITAMIN D NOS [Concomitant]
     Dosage: 1 TAB(S), 2X/DAY

REACTIONS (1)
  - NEOPLASM [None]
